FAERS Safety Report 9870735 (Version 2)
Quarter: 2014Q1

REPORT INFORMATION
  Report Type: Spontaneous
  Country: JP (occurrence: JP)
  Receive Date: 20140205
  Receipt Date: 20140205
  Transmission Date: 20141002
  Serious: Yes (Other)
  Sender: FDA-Public Use
  Company Number: PHHY2013JP039243

PATIENT
  Age: 56 Year
  Sex: Male

DRUGS (2)
  1. GLIVEC [Suspect]
     Indication: GASTROINTESTINAL STROMAL TUMOUR
     Dosage: 400 MG, DAILY
     Route: 048
     Dates: start: 20130128, end: 20130203
  2. GLIVEC [Suspect]
     Dosage: 300 MG, DAILY
     Route: 048
     Dates: start: 20130418, end: 20130429

REACTIONS (2)
  - Shock [Recovered/Resolved]
  - Tumour haemorrhage [Recovered/Resolved]
